FAERS Safety Report 8238970-6 (Version None)
Quarter: 2012Q1

REPORT INFORMATION
  Report Type: 
  Country: None (occurrence: None)
  Receive Date: 20120327
  Receipt Date: 20120319
  Transmission Date: 20120608
  Serious: Yes (Hospitalization)
  Sender: FDA-Public Use
  Company Number: PHHY2012DE025004

PATIENT
  Sex: Female

DRUGS (4)
  1. NSAID'S [Concomitant]
  2. EXTAVIA [Suspect]
     Dosage: UNK UKN, UNK
     Route: 058
  3. EXTAVIA [Suspect]
     Indication: MULTIPLE SCLEROSIS
     Dosage: 1 ML, QOD
  4. ANTIDEPRESSANTS [Concomitant]

REACTIONS (3)
  - DIARRHOEA [None]
  - GASTROENTERITIS CLOSTRIDIAL [None]
  - ASCITES [None]
